FAERS Safety Report 23930889 (Version 1)
Quarter: 2024Q2

REPORT INFORMATION
  Report Type: Spontaneous
  Country: RO (occurrence: RO)
  Receive Date: 20240603
  Receipt Date: 20240603
  Transmission Date: 20240716
  Serious: Yes (Death, Hospitalization, Other)
  Sender: FDA-Public Use
  Company Number: RO-ABBVIE-5779024

PATIENT
  Age: 70 Year
  Sex: Male

DRUGS (12)
  1. VENETOCLAX [Suspect]
     Active Substance: VENETOCLAX
     Indication: Acute myeloid leukaemia
     Dosage: FREQUENCY :ONE IN ONCE DAY 1
     Route: 048
     Dates: start: 2024, end: 2024
  2. VENETOCLAX [Suspect]
     Active Substance: VENETOCLAX
     Indication: Acute myeloid leukaemia
     Dosage: FREQUENCY :ONE IN ONCE DAY 2
     Route: 048
     Dates: start: 2024, end: 2024
  3. VENETOCLAX [Suspect]
     Active Substance: VENETOCLAX
     Indication: Acute myeloid leukaemia
     Dosage: FREQUENCY :ONE IN ONCE DAY 3
     Route: 048
     Dates: start: 2024, end: 2024
  4. VENETOCLAX [Suspect]
     Active Substance: VENETOCLAX
     Indication: Acute myeloid leukaemia
     Dosage: FREQUENCY :ONE IN ONCE ,DAY-DAY1-21
     Route: 048
     Dates: start: 2024
  5. SULFAMETHOXAZOLE AND TRIMETHOPRIM [Concomitant]
     Active Substance: SULFAMETHOXAZOLE\TRIMETHOPRIM
     Indication: Infection prophylaxis
  6. LEVOFLOXACIN [Concomitant]
     Active Substance: LEVOFLOXACIN
     Indication: Infection prophylaxis
  7. ACYCLOVIR [Concomitant]
     Active Substance: ACYCLOVIR
     Indication: Infection prophylaxis
     Dosage: TIME INTERVAL: 0.33333333 DAYS
  8. FLUCONAZOLE [Concomitant]
     Active Substance: FLUCONAZOLE
     Indication: Infection prophylaxis
  9. MEROPENEM [Concomitant]
     Active Substance: MEROPENEM
     Indication: Febrile neutropenia
     Route: 042
  10. POSACONAZOLE [Concomitant]
     Active Substance: POSACONAZOLE
     Indication: Febrile neutropenia
  11. AZACITIDINE [Concomitant]
     Active Substance: AZACITIDINE
     Indication: Acute myeloid leukaemia
     Dosage: 75MG/M2/DAY, DAYS 1-7, CYCLES AT 28.
     Route: 058
  12. LINEZOLID [Concomitant]
     Active Substance: LINEZOLID
     Indication: Febrile neutropenia
     Route: 042

REACTIONS (15)
  - Sepsis [Fatal]
  - Febrile neutropenia [Unknown]
  - Thrombocytopenia [Recovering/Resolving]
  - Cardio-respiratory arrest [Unknown]
  - Constipation [Unknown]
  - Intestinal sepsis [Unknown]
  - Septic shock [Unknown]
  - Anaemia [Recovering/Resolving]
  - Depression [Unknown]
  - Anal fissure [Unknown]
  - Muscle atrophy [Unknown]
  - Multiple organ dysfunction syndrome [Fatal]
  - Clostridium difficile colitis [Unknown]
  - Cytopenia [Unknown]
  - Rectal haemorrhage [Unknown]

NARRATIVE: CASE EVENT DATE: 20240101
